FAERS Safety Report 7255003-9 (Version None)
Quarter: 2011Q1

REPORT INFORMATION
  Report Type: 
  Country: None (occurrence: None)
  Receive Date: 20110129
  Receipt Date: 20100302
  Transmission Date: 20110831
  Serious: No
  Sender: FDA-Public Use
  Company Number: US-ABBOTT-10P-163-0625108-00

PATIENT
  Sex: Male
  Weight: 70.37 kg

DRUGS (9)
  1. VIT D [Concomitant]
  2. CABERGOLINE [Concomitant]
     Indication: PROLACTINOMA
  3. METHOTREXATE [Concomitant]
  4. HUMIRA [Suspect]
     Indication: RHEUMATOID ARTHRITIS
     Route: 058
     Dates: start: 20080401, end: 20100210
  5. FOLIC ACID [Concomitant]
  6. POLYSACIRIDE IRON COMPLEX [Concomitant]
  7. ADRENALATE SODIUM [Concomitant]
     Indication: OSTEOPOROSIS
  8. PREDNISONE [Concomitant]
  9. CALCIUM [Concomitant]

REACTIONS (7)
  - COUGH [None]
  - RESPIRATORY TRACT CONGESTION [None]
  - PRODUCTIVE COUGH [None]
  - NASOPHARYNGITIS [None]
  - RHINORRHOEA [None]
  - ASTHMA [None]
  - SINUSITIS [None]
